FAERS Safety Report 22660556 (Version 1)
Quarter: 2023Q2

REPORT INFORMATION
  Report Type: Spontaneous
  Country: US (occurrence: US)
  Receive Date: 20230630
  Receipt Date: 20230630
  Transmission Date: 20230721
  Serious: No
  Sender: FDA-Public Use
  Company Number: US-JAZZ PHARMACEUTICALS-2022-US-024886

PATIENT
  Sex: Male

DRUGS (4)
  1. EPIDIOLEX [Suspect]
     Active Substance: CANNABIDIOL
     Indication: Lennox-Gastaut syndrome
     Dosage: 1 MILLILITER, TID, VIA G-TUBE
  2. OXCARBAZEPINE [Concomitant]
     Active Substance: OXCARBAZEPINE
     Dosage: UNK
  3. CLOBETASOL PROPIONATE [Concomitant]
     Active Substance: CLOBETASOL PROPIONATE
     Dosage: UNK
  4. MIRALAX [Concomitant]
     Active Substance: POLYETHYLENE GLYCOL 3350
     Dosage: UNK

REACTIONS (1)
  - Product dose omission issue [Unknown]
